FAERS Safety Report 5490450-7 (Version None)
Quarter: 2007Q4

REPORT INFORMATION
  Report Type: 
  Country: None (occurrence: None)
  Receive Date: 20071017
  Receipt Date: 20071017
  Transmission Date: 20080405
  Serious: Yes (Hospitalization)
  Sender: FDA-Public Use
  Company Number: None

PATIENT
  Age: 61 Year
  Sex: Female
  Weight: 73.4827 kg

DRUGS (14)
  1. BEVACIZUMAB 10MG/KG - GENENTECH [Suspect]
     Indication: METASTATIC RENAL CELL CARCINOMA
     Dosage: 710 MG Q 2 WEEKS IV
     Route: 042
     Dates: start: 20070911
  2. ALDESLEUKIN 600,000 IU/KG - NOVARTIS (CHIRON) [Suspect]
     Dosage: 42.6 MU Q 8 HOURS IV
     Route: 042
     Dates: start: 20070816, end: 20070821
  3. SILVADENE [Concomitant]
  4. OYCONDONE [Concomitant]
  5. OXYCONTIN [Concomitant]
  6. MEGACE [Concomitant]
  7. LOVENOX [Concomitant]
  8. AMBIEN [Concomitant]
  9. PHENERGAN HCL [Concomitant]
  10. VICODIN [Concomitant]
  11. KLOR-CON [Concomitant]
  12. LEVOTHYROXINE SODIUM [Concomitant]
  13. TRIAMTERENE AND HYDROCHLOROTHIAZIDE [Concomitant]
  14. TOPROL-XL [Concomitant]

REACTIONS (9)
  - ACUTE SINUSITIS [None]
  - BLOOD PRESSURE INCREASED [None]
  - CONVULSION [None]
  - DYSKINESIA [None]
  - EYE ROLLING [None]
  - FOAMING AT MOUTH [None]
  - MENINGITIS [None]
  - REVERSIBLE POSTERIOR LEUKOENCEPHALOPATHY SYNDROME [None]
  - URINARY INCONTINENCE [None]
